FAERS Safety Report 26185769 (Version 1)
Quarter: 2025Q4

REPORT INFORMATION
  Report Type: Spontaneous
  Country: IN (occurrence: IN)
  Receive Date: 20251222
  Receipt Date: 20251222
  Transmission Date: 20260118
  Serious: Yes (Life-Threatening, Hospitalization)
  Sender: MYLAN
  Company Number: IN-MYLANLABS-2025M1107348

PATIENT
  Age: 42 Year
  Sex: Male

DRUGS (1)
  1. PHENYTOIN [Suspect]
     Active Substance: PHENYTOIN
     Indication: Seizure
     Dosage: 200 MILLIGRAM

REACTIONS (3)
  - Toxic epidermal necrolysis [Unknown]
  - Cerebellar atrophy [Unknown]
  - Oedema peripheral [Unknown]
